FAERS Safety Report 17395544 (Version 3)
Quarter: 2020Q1

REPORT INFORMATION
  Report Type: Report from Study
  Country: CA (occurrence: CA)
  Receive Date: 20200210
  Receipt Date: 20200312
  Transmission Date: 20200409
  Serious: Yes (Other)
  Sender: FDA-Public Use
  Company Number: CA-GLAXOSMITHKLINE-CA2020AMR022086

PATIENT
  Sex: Female

DRUGS (1)
  1. MEPOLIZUMAB [Suspect]
     Active Substance: MEPOLIZUMAB
     Indication: ASTHMA
     Dosage: 100 MG, Z (MONTHLY)
     Route: 042
     Dates: start: 20180705

REACTIONS (9)
  - Rash [Unknown]
  - Dizziness [Unknown]
  - Pain [Unknown]
  - Rash pruritic [Unknown]
  - Herpes zoster [Unknown]
  - Headache [Unknown]
  - Pulmonary oedema [Unknown]
  - Malaise [Unknown]
  - Injection site haemorrhage [Unknown]
